FAERS Safety Report 6967345-2 (Version None)
Quarter: 2010Q3

REPORT INFORMATION
  Report Type: 
  Country: None (occurrence: None)
  Receive Date: 20100907
  Receipt Date: 20100826
  Transmission Date: 20110219
  Serious: Yes (Other)
  Sender: FDA-Public Use
  Company Number: US-JNJFOC-20100808985

PATIENT
  Age: 7 Decade
  Sex: Male

DRUGS (2)
  1. DOXIL [Suspect]
     Indication: MULTIPLE MYELOMA
     Route: 042
  2. VELCADE [Suspect]
     Indication: MULTIPLE MYELOMA
     Route: 042

REACTIONS (4)
  - ADVERSE DRUG REACTION [None]
  - FALL [None]
  - INSOMNIA [None]
  - PAIN IN EXTREMITY [None]
